FAERS Safety Report 26168360 (Version 2)
Quarter: 2025Q4

REPORT INFORMATION
  Report Type: Spontaneous
  Country: MX (occurrence: MX)
  Receive Date: 20251217
  Receipt Date: 20251218
  Transmission Date: 20260119
  Serious: Yes (Hospitalization, Other)
  Sender: RANBAXY
  Company Number: MX-SUN PHARMACEUTICAL INDUSTRIES LTD-2025R1-542169

PATIENT
  Age: 47 Year
  Sex: Male

DRUGS (1)
  1. SILDENAFIL [Suspect]
     Active Substance: SILDENAFIL
     Indication: Product used for unknown indication
     Dosage: UNK
     Route: 065

REACTIONS (1)
  - Cerebral haemorrhage [Unknown]
